FAERS Safety Report 17286116 (Version 1)
Quarter: 2020Q1

REPORT INFORMATION
  Report Type: Spontaneous
  Country: IL (occurrence: IL)
  Receive Date: 20200118
  Receipt Date: 20200118
  Transmission Date: 20200409
  Serious: Yes (Hospitalization)
  Sender: FDA-Public Use
  Company Number: IL-ROCHE-2524530

PATIENT
  Sex: Female

DRUGS (1)
  1. ACTEMRA [Suspect]
     Active Substance: TOCILIZUMAB
     Indication: TAKAYASU^S ARTERITIS
     Route: 065
     Dates: start: 2019, end: 202001

REACTIONS (9)
  - Abdominal pain [Unknown]
  - Off label use [Unknown]
  - Skin ulcer [Unknown]
  - Blister [Unknown]
  - Loss of consciousness [Unknown]
  - Hypertension [Unknown]
  - Pruritus [Unknown]
  - Headache [Unknown]
  - Product dose omission [Unknown]
